FAERS Safety Report 11583544 (Version 4)
Quarter: 2016Q1

REPORT INFORMATION
  Report Type: Spontaneous
  Country: US (occurrence: None)
  Receive Date: 20151001
  Receipt Date: 20160208
  Transmission Date: 20160525
  Serious: Yes (Other)
  Sender: FDA-Public Use
  Company Number: ADR-2013-00899

PATIENT
  Age: 38 Year
  Sex: Female

DRUGS (2)
  1. GABLOFEN [Suspect]
     Active Substance: BACLOFEN
  2. LIORESAL [Suspect]
     Active Substance: BACLOFEN
     Indication: MUSCLE SPASTICITY

REACTIONS (16)
  - Pain in extremity [None]
  - Gait disturbance [None]
  - No therapeutic response [None]
  - Muscle tightness [None]
  - Paradoxical drug reaction [None]
  - Catheter site pain [None]
  - Pain [None]
  - Infusion site mass [None]
  - Therapeutic response unexpected [None]
  - Medical device site pain [None]
  - Back pain [None]
  - Pruritus [None]
  - Drug intolerance [None]
  - Muscle spasticity [None]
  - Neuralgia [None]
  - Muscle spasms [None]
